FAERS Safety Report 7778027-1 (Version None)
Quarter: 2011Q3

REPORT INFORMATION
  Report Type: 
  Country: None (occurrence: None)
  Receive Date: 20110926
  Receipt Date: 20110919
  Transmission Date: 20111222
  Serious: No
  Sender: FDA-Public Use
  Company Number: US-BIOGENIDEC-2011BI036024

PATIENT
  Sex: Female

DRUGS (1)
  1. AVONEX [Suspect]
     Indication: MULTIPLE SCLEROSIS
     Route: 030
     Dates: start: 20001209

REACTIONS (7)
  - CONTUSION [None]
  - INFLUENZA LIKE ILLNESS [None]
  - CHILLS [None]
  - MEMORY IMPAIRMENT [None]
  - PAIN [None]
  - ATROPHY [None]
  - PYREXIA [None]
